FAERS Safety Report 14859654 (Version 1)
Quarter: 2018Q2

REPORT INFORMATION
  Report Type: Spontaneous
  Country: US (occurrence: US)
  Receive Date: 20180508
  Receipt Date: 20180508
  Transmission Date: 20180711
  Serious: No
  Sender: FDA-Public Use
  Company Number: US-PFIZER INC-2018186133

PATIENT
  Age: 50 Year
  Sex: Male
  Weight: 91 kg

DRUGS (5)
  1. CYCLOBENZAPRINE. [Concomitant]
     Active Substance: CYCLOBENZAPRINE
     Indication: MUSCLE SPASMS
     Dosage: 1 DF, 3X/DAY, AS NEEDED (SOMETIMED TAKE 2 AT ONE TIME WHEN THE PAIN IS REALLY BAD)
  2. LYRICA [Suspect]
     Active Substance: PREGABALIN
     Dosage: UNK
     Dates: start: 201709
  3. LYRICA [Suspect]
     Active Substance: PREGABALIN
     Dosage: 1 CAPSULE, 1X/DAY
     Route: 048
     Dates: end: 201803
  4. HYDROCODONE [Concomitant]
     Active Substance: HYDROCODONE
     Indication: PAIN
     Dosage: 1 DF, AS NEEDED (10-325 MG ONE EVERY 8 HOURS , AS NEEDED)
  5. VALIUM [Concomitant]
     Active Substance: DIAZEPAM
     Indication: SLEEP DISORDER
     Dosage: UNK

REACTIONS (2)
  - Drug effect incomplete [Unknown]
  - Intentional product use issue [Unknown]
